FAERS Safety Report 18420036 (Version 8)
Quarter: 2021Q1

REPORT INFORMATION
  Report Type: Spontaneous
  Country: US (occurrence: US)
  Receive Date: 20201023
  Receipt Date: 20210217
  Transmission Date: 20210419
  Serious: Yes (Other)
  Sender: FDA-Public Use
  Company Number: US-PFIZER INC-2020409914

PATIENT
  Age: 66 Year
  Sex: Female

DRUGS (1)
  1. LYRICA [Suspect]
     Active Substance: PREGABALIN
     Dosage: UNK

REACTIONS (5)
  - Fall [Unknown]
  - Limb injury [Unknown]
  - Arthritis [Unknown]
  - Joint injury [Unknown]
  - Foot fracture [Unknown]

NARRATIVE: CASE EVENT DATE: 202010
